FAERS Safety Report 6542836-7 (Version None)
Quarter: 2010Q1

REPORT INFORMATION
  Report Type: 
  Country: None (occurrence: None)
  Receive Date: 20100114
  Receipt Date: 20100106
  Transmission Date: 20100710
  Serious: Yes (Death)
  Sender: FDA-Public Use
  Company Number: CERZ-1001095

PATIENT
  Sex: Male

DRUGS (2)
  1. CEREZYME [Suspect]
     Indication: GAUCHER'S DISEASE
     Dosage: INTRAVENOUS
     Route: 042
     Dates: end: 20090601
  2. ZAVESCA [Suspect]
     Indication: GAUCHER'S DISEASE

REACTIONS (3)
  - CARDIAC FAILURE [None]
  - HYPERTENSION [None]
  - MYOCARDIAL INFARCTION [None]
